FAERS Safety Report 6024888-6 (Version None)
Quarter: 2008Q4

REPORT INFORMATION
  Report Type: 
  Country: None (occurrence: None)
  Receive Date: 20081231
  Receipt Date: 20081222
  Transmission Date: 20090506
  Serious: Yes (Hospitalization)
  Sender: FDA-Public Use
  Company Number: US-JNJFOC-20080106062

PATIENT
  Sex: Female
  Weight: 87.09 kg

DRUGS (3)
  1. HALDOL [Suspect]
     Route: 030
  2. HALDOL [Suspect]
     Indication: SCHIZOPHRENIA
     Route: 030
  3. DEPAKOTE [Concomitant]
     Indication: SCHIZOPHRENIA

REACTIONS (26)
  - ADVERSE EVENT [None]
  - ALOPECIA [None]
  - ANAEMIA [None]
  - CANDIDIASIS [None]
  - CATATONIA [None]
  - DEFORMITY [None]
  - DYSKINESIA [None]
  - DYSPHAGIA [None]
  - DYSURIA [None]
  - EMOTIONAL DISORDER [None]
  - EYE IRRITATION [None]
  - GLAUCOMA [None]
  - HALLUCINATION, AUDITORY [None]
  - NAUSEA [None]
  - NEGATIVISM [None]
  - PELVIC PAIN [None]
  - RASH [None]
  - RESTLESS LEGS SYNDROME [None]
  - RESTLESSNESS [None]
  - RETCHING [None]
  - SENSATION OF HEAVINESS [None]
  - SUICIDAL IDEATION [None]
  - TARDIVE DYSKINESIA [None]
  - THINKING ABNORMAL [None]
  - WEIGHT INCREASED [None]
  - WITHDRAWAL SYNDROME [None]
